FAERS Safety Report 9201204 (Version 2)
Quarter: 2013Q2

REPORT INFORMATION
  Report Type: Spontaneous
  Country: BR (occurrence: BR)
  Receive Date: 20130401
  Receipt Date: 20130425
  Transmission Date: 20140414
  Serious: Yes (Other)
  Sender: FDA-Public Use
  Company Number: PHHY2013BR030992

PATIENT
  Age: 35 Year
  Sex: Female
  Weight: 58 kg

DRUGS (3)
  1. FORASEQ [Suspect]
     Indication: ASTHMA
     Dosage: EVERY DAY
  2. FORASEQ [Suspect]
     Dosage: EVERY 12 HOURS THREE TIMES PER WEEK
  3. FORASEQ [Suspect]
     Dosage: UNK UKN, UNK

REACTIONS (8)
  - Polycystic ovaries [Recovered/Resolved]
  - Mass [Recovered/Resolved]
  - Pruritus generalised [Recovered/Resolved]
  - Eye swelling [Recovered/Resolved]
  - Swelling face [Recovered/Resolved]
  - Wrong technique in drug usage process [Unknown]
  - Erythema [Recovered/Resolved]
  - Tremor [Recovered/Resolved]
